FAERS Safety Report 7272612-1 (Version None)
Quarter: 2011Q1

REPORT INFORMATION
  Report Type: 
  Country: None (occurrence: None)
  Receive Date: 20110128
  Receipt Date: 20110118
  Transmission Date: 20110831
  Serious: Yes (Other)
  Sender: FDA-Public Use
  Company Number: 1000017403

PATIENT
  Age: 29 Year

DRUGS (10)
  1. PLACEBO [Suspect]
     Indication: EMBOLISM ARTERIAL
     Dates: start: 20101021, end: 20101001
  2. LEPTICUR (TROPATEPINE HYDROCHLORIDE) (TOPATEPINE HYDROCHLORIDE) [Concomitant]
  3. WARFARIN SODIUM [Suspect]
     Indication: EMBOLISM ARTERIAL
     Dosage: 6 MG (6 MG, 1 IN 1 D), ORAL
     Route: 048
     Dates: start: 20101021, end: 20101021
  4. LEVOTHYROXINE (LEVOTHYROXINE SODIUM) (LEVOTHYROXINE SODIUM) [Concomitant]
  5. INEXIUM (ESOMEPRAZOLE) (ESOMEPRAZOLE) [Concomitant]
  6. ABILIFY [Suspect]
     Dosage: 10 MG
  7. APIXABAN [Suspect]
     Indication: EMBOLISM ARTERIAL
     Dosage: 10 MG (10 MG, 1 IN 1 D), ORAL
     Route: 048
     Dates: start: 20101021, end: 20101022
  8. ENOXAPARIN SODIUM [Suspect]
     Indication: EMBOLISM ARTERIAL
     Dosage: 87 ML (87 ML, 1 IN 1 D), SUBCUTANEOUS
     Route: 058
     Dates: start: 20101021, end: 20101022
  9. MILNACIPRAN (MILNACIPRAN HYDROCHLORIDE) (CAPSULES) [Suspect]
     Dosage: 100 MG, ORAL
     Route: 048
  10. PROPANOLOL HYDROCHLORIDE (PROPANOLOL HYDROCHLORIDE) (PROPANOLOL HYDROC [Concomitant]

REACTIONS (1)
  - PSYCHIATRIC DECOMPENSATION [None]
